FAERS Safety Report 14611142 (Version 1)
Quarter: 2018Q1

REPORT INFORMATION
  Report Type: Spontaneous
  Country: US (occurrence: US)
  Receive Date: 20180308
  Receipt Date: 20180308
  Transmission Date: 20180509
  Serious: Yes (Other)
  Sender: FDA-Public Use
  Company Number: US-WEST-WARD PHARMACEUTICALS CORP.-US-H14001-18-01586

PATIENT
  Age: 54 Year
  Sex: Male

DRUGS (2)
  1. OCTREOTIDE. [Suspect]
     Active Substance: OCTREOTIDE
     Indication: SECRETORY ADENOMA OF PITUITARY
     Dosage: UPTITRATION
     Route: 058
     Dates: start: 2014
  2. OCTREOTIDE. [Suspect]
     Active Substance: OCTREOTIDE
     Indication: SECRETORY ADENOMA OF PITUITARY
     Dosage: UPTITRATION TO 100 MCG TWICE DAILY
     Route: 058
     Dates: start: 2014

REACTIONS (2)
  - Irritable bowel syndrome [Unknown]
  - Drug intolerance [Unknown]

NARRATIVE: CASE EVENT DATE: 2014
